FAERS Safety Report 10291338 (Version 3)
Quarter: 2014Q3

REPORT INFORMATION
  Report Type: Spontaneous
  Country: US (occurrence: US)
  Receive Date: 20140710
  Receipt Date: 20140908
  Transmission Date: 20150326
  Serious: No
  Sender: FDA-Public Use
  Company Number: US-GILEAD-2014-0108069

PATIENT
  Age: 58 Year
  Sex: Female

DRUGS (16)
  1. LETAIRIS [Suspect]
     Active Substance: AMBRISENTAN
     Indication: PULMONARY HYPERTENSION
     Dosage: 10 MG, QD
     Route: 065
     Dates: start: 20130911, end: 20140703
  2. CLARINEX [Concomitant]
     Active Substance: DESLORATADINE
  3. ATIVAN [Concomitant]
     Active Substance: LORAZEPAM
  4. BYSTOLIC [Concomitant]
     Active Substance: NEBIVOLOL HYDROCHLORIDE
  5. ACIPHEX [Concomitant]
     Active Substance: RABEPRAZOLE SODIUM
  6. BUMETANIDE. [Concomitant]
     Active Substance: BUMETANIDE
  7. VITAMIN D [Concomitant]
     Active Substance: CHOLECALCIFEROL
  8. ADVAIR HFA [Concomitant]
     Active Substance: FLUTICASONE PROPIONATE\SALMETEROL XINAFOATE
  9. ZOCOR [Concomitant]
     Active Substance: SIMVASTATIN
  10. SINGULAIR [Concomitant]
     Active Substance: MONTELUKAST SODIUM
  11. POTASSIUM [Concomitant]
     Active Substance: POTASSIUM
  12. ALDACTONE [Concomitant]
     Active Substance: SPIRONOLACTONE
  13. MIRAPEX [Concomitant]
     Active Substance: PRAMIPEXOLE DIHYDROCHLORIDE
  14. PEPCID [Concomitant]
     Active Substance: FAMOTIDINE
  15. CYMBALTA [Concomitant]
     Active Substance: DULOXETINE HYDROCHLORIDE
  16. HUMALOG [Concomitant]
     Active Substance: INSULIN LISPRO

REACTIONS (3)
  - Swelling [Recovered/Resolved]
  - Feeling abnormal [Unknown]
  - Oedema peripheral [Not Recovered/Not Resolved]

NARRATIVE: CASE EVENT DATE: 20140619
